FAERS Safety Report 18702120 (Version 1)
Quarter: 2021Q1

REPORT INFORMATION
  Report Type: Spontaneous
  Country: US (occurrence: US)
  Receive Date: 20210105
  Receipt Date: 20210105
  Transmission Date: 20210419
  Serious: Yes (Other)
  Sender: FDA-Public Use
  Company Number: US-JNJFOC-20201252218

PATIENT
  Sex: Female
  Weight: 65.83 kg

DRUGS (3)
  1. TOPAMAX [Suspect]
     Active Substance: TOPIRAMATE
     Indication: WEIGHT DECREASED
  2. TOPAMAX [Suspect]
     Active Substance: TOPIRAMATE
     Indication: MIGRAINE
     Route: 048
     Dates: start: 2015, end: 20201221
  3. TOPAMAX [Suspect]
     Active Substance: TOPIRAMATE
     Indication: ANXIETY

REACTIONS (2)
  - Product dose omission issue [Unknown]
  - Abnormal weight gain [Unknown]

NARRATIVE: CASE EVENT DATE: 20201221
